FAERS Safety Report 22355148 (Version 1)
Quarter: 2023Q2

REPORT INFORMATION
  Report Type: Spontaneous
  Country: US (occurrence: US)
  Receive Date: 20230523
  Receipt Date: 20230523
  Transmission Date: 20230722
  Serious: Yes (Hospitalization)
  Sender: FDA-Public Use
  Company Number: US-MIRATI-MT2023PM04014

PATIENT

DRUGS (2)
  1. KRAZATI [Suspect]
     Active Substance: ADAGRASIB
     Indication: Non-small cell lung cancer metastatic
     Dosage: 600 MG, BID
     Route: 048
  2. KRAZATI [Suspect]
     Active Substance: ADAGRASIB
     Dosage: 400 MG, BID
     Route: 048

REACTIONS (1)
  - Pleural effusion [Not Recovered/Not Resolved]
